FAERS Safety Report 17148665 (Version 2)
Quarter: 2020Q4

REPORT INFORMATION
  Report Type: Spontaneous
  Country: DE (occurrence: DE)
  Receive Date: 20191213
  Receipt Date: 20201112
  Transmission Date: 20210113
  Serious: Yes (Death, Other)
  Sender: FDA-Public Use
  Company Number: DE-SA-2019SA342746

PATIENT

DRUGS (3)
  1. CLEXANE [Suspect]
     Active Substance: ENOXAPARIN SODIUM
     Indication: ABDOMINAL OPERATION
     Dosage: ONCE DAILY 4000 IU THROMBOSIS INJECTION GIVEN BY MOTHER EVERY EVENING AT 19:00
     Route: 058
     Dates: start: 20181221, end: 20181226
  2. CLEXANE [Suspect]
     Active Substance: ENOXAPARIN SODIUM
     Indication: GASTROINTESTINAL DISORDER
  3. CLEXANE [Suspect]
     Active Substance: ENOXAPARIN SODIUM
     Indication: THROMBOSIS PROPHYLAXIS

REACTIONS (4)
  - Pulmonary embolism [Fatal]
  - Product quality issue [Unknown]
  - Myocardial infarction [Fatal]
  - Drug ineffective [Fatal]

NARRATIVE: CASE EVENT DATE: 20181220
